FAERS Safety Report 13947550 (Version 1)
Quarter: 2017Q3

REPORT INFORMATION
  Report Type: Report from Study
  Country: AR (occurrence: AR)
  Receive Date: 20170908
  Receipt Date: 20170908
  Transmission Date: 20171128
  Serious: Yes (Other)
  Sender: FDA-Public Use
  Company Number: AR-BRISTOL-MYERS SQUIBB COMPANY-BMS-2015-025167

PATIENT
  Age: 79 Year
  Sex: Female

DRUGS (2)
  1. ENTECAVIR. [Suspect]
     Active Substance: ENTECAVIR
     Indication: HEPATITIS B
     Dosage: 0.05 MG, QD
     Route: 065
     Dates: start: 20141001
  2. TEGRETOL [Concomitant]
     Active Substance: CARBAMAZEPINE
     Indication: PRODUCT USED FOR UNKNOWN INDICATION
     Route: 065

REACTIONS (13)
  - Pericardial effusion [Recovering/Resolving]
  - Weight decreased [Unknown]
  - Dizziness [Recovering/Resolving]
  - Vertigo [Recovering/Resolving]
  - Skin swelling [Recovering/Resolving]
  - Fatigue [Recovering/Resolving]
  - Bronchitis [Recovering/Resolving]
  - Abdominal discomfort [Recovering/Resolving]
  - Pain of skin [Recovering/Resolving]
  - Patella fracture [Recovering/Resolving]
  - Head injury [Recovering/Resolving]
  - Fall [Unknown]
  - Alopecia [Recovering/Resolving]

NARRATIVE: CASE EVENT DATE: 20150416
